FAERS Safety Report 6175294-5 (Version None)
Quarter: 2009Q2

REPORT INFORMATION
  Report Type: 
  Country: None (occurrence: None)
  Receive Date: 20090430
  Receipt Date: 20090211
  Transmission Date: 20091009
  Serious: No
  Sender: FDA-Public Use
  Company Number: US-ASTRAZENECA-2009UW03958

PATIENT
  Sex: Female
  Weight: 52.2 kg

DRUGS (1)
  1. NEXIUM [Suspect]
     Indication: OESOPHAGEAL PAIN
     Dosage: TWO CAPS DAILY
     Route: 048

REACTIONS (2)
  - DRUG INEFFECTIVE [None]
  - WRONG TECHNIQUE IN DRUG USAGE PROCESS [None]
